FAERS Safety Report 17855424 (Version 1)
Quarter: 2020Q2

REPORT INFORMATION
  Report Type: Spontaneous
  Country: BR (occurrence: BR)
  Receive Date: 20200603
  Receipt Date: 20200603
  Transmission Date: 20200714
  Serious: Yes (Other)
  Sender: FDA-Public Use
  Company Number: BR-PFIZER INC-2020214713

PATIENT
  Age: 76 Year
  Sex: Female

DRUGS (1)
  1. CITALOR [Suspect]
     Active Substance: ATORVASTATIN
     Dosage: 10 MG

REACTIONS (2)
  - Vision blurred [Unknown]
  - Cataract [Unknown]
